FAERS Safety Report 4972298-2 (Version None)
Quarter: 2006Q2

REPORT INFORMATION
  Report Type: 
  Country: None (occurrence: None)
  Receive Date: 20060413
  Receipt Date: 20060113
  Transmission Date: 20061013
  Serious: Yes (Life-Threatening, Hospitalization)
  Sender: FDA-Public Use
  Company Number: JP-ABBOTT-06P-087-0322366-00

PATIENT
  Sex: Male

DRUGS (10)
  1. NORVIR [Suspect]
     Indication: HIV INFECTION
     Route: 048
     Dates: start: 20040428, end: 20050215
  2. NORVIR [Suspect]
     Route: 048
     Dates: start: 20040401, end: 20040427
  3. ZIDOVUDINE [Suspect]
     Indication: HIV INFECTION
     Route: 048
     Dates: start: 20040428, end: 20050215
  4. LAMIVUDINE [Suspect]
     Indication: HIV INFECTION
     Route: 048
     Dates: start: 20040401, end: 20050215
  5. SAQUINAVIR HARD GEL [Suspect]
     Indication: HIV INFECTION
     Route: 048
     Dates: start: 20041005, end: 20050215
  6. SAQUINAVIR HARD GEL [Suspect]
     Route: 048
     Dates: start: 20040428, end: 20041004
  7. ATAZANAVIR [Concomitant]
     Indication: HIV INFECTION
     Route: 048
     Dates: start: 20040401, end: 20040427
  8. TENOFOVIR [Concomitant]
     Indication: HIV INFECTION
     Route: 048
     Dates: start: 20040401, end: 20040427
  9. FREEZE-DRIED HUMAN BLOOD COAGULATION FACTOR IX [Concomitant]
     Indication: FACTOR IX DEFICIENCY
     Dates: start: 20040401
  10. URSODEOXYCHOLIC ACID [Concomitant]
     Indication: HEPATITIS C
     Dates: start: 20040401

REACTIONS (2)
  - SUBDURAL HAEMATOMA [None]
  - THROMBOCYTOPENIA [None]
